FAERS Safety Report 25876161 (Version 1)
Quarter: 2025Q4

REPORT INFORMATION
  Report Type: Spontaneous
  Country: EU (occurrence: EU)
  Receive Date: 20251003
  Receipt Date: 20251003
  Transmission Date: 20260117
  Serious: Yes (Other)
  Sender: SANDOZ
  Company Number: EU-002147023-NVSC2021PL081940

PATIENT
  Age: 58 Year
  Sex: Male

DRUGS (9)
  1. CISPLATIN [Suspect]
     Active Substance: CISPLATIN
     Indication: Lung carcinoma cell type unspecified stage IV
     Dosage: 6 CYCLES
     Route: 065
     Dates: start: 201612, end: 201704
  2. DOCETAXEL [Suspect]
     Active Substance: DOCETAXEL
     Indication: Lung adenocarcinoma stage IV
     Dosage: 75 MG/M2, CYCLIC FOR 15 CYCLES
     Route: 042
     Dates: start: 201812, end: 202001
  3. DOCETAXEL [Suspect]
     Active Substance: DOCETAXEL
     Indication: Metastases to bone
     Dosage: QCY
     Route: 065
     Dates: start: 202001, end: 202001
  4. DOCETAXEL [Suspect]
     Active Substance: DOCETAXEL
     Indication: Chemotherapy
  5. GEMCITABINE [Suspect]
     Active Substance: GEMCITABINE
     Indication: Lung carcinoma cell type unspecified stage IV
     Dosage: 1000 MILLIGRAM/SQ. METER, 3 DOSES
     Route: 065
     Dates: start: 202002, end: 202003
  6. NINTEDANIB [Suspect]
     Active Substance: NINTEDANIB
     Indication: Metastases to bone
     Dosage: UNK, CYCLIC
     Route: 065
     Dates: start: 202001, end: 202001
  7. NINTEDANIB [Suspect]
     Active Substance: NINTEDANIB
     Indication: Lung adenocarcinoma stage IV
     Dosage: ON DAY 2 OF 21 DAY CYCLE FOR 15 CYCLES
     Route: 065
     Dates: start: 201812, end: 202001
  8. NINTEDANIB [Suspect]
     Active Substance: NINTEDANIB
     Indication: Chemotherapy
  9. PEMETREXED [Suspect]
     Active Substance: PEMETREXED
     Indication: Lung carcinoma cell type unspecified stage IV
     Dosage: 6 CYCLES
     Route: 065
     Dates: start: 201612, end: 201704

REACTIONS (15)
  - Nephropathy toxic [Unknown]
  - Malaise [Unknown]
  - Malignant neoplasm progression [Unknown]
  - Malignant neoplasm progression [Unknown]
  - Lung adenocarcinoma [Unknown]
  - Transaminases increased [Recovered/Resolved]
  - Asthenia [Unknown]
  - Thrombocytopenia [Unknown]
  - Upper respiratory tract infection [Unknown]
  - Decreased appetite [Unknown]
  - Abdominal pain [Unknown]
  - Nausea [Unknown]
  - Pulmonary embolism [Unknown]
  - Neutropenia [Unknown]
  - Blood pressure increased [Recovered/Resolved]
